FAERS Safety Report 9659643 (Version 1)
Quarter: 2013Q4

REPORT INFORMATION
  Report Type: Spontaneous
  Country: JP (occurrence: JP)
  Receive Date: 20131031
  Receipt Date: 20131031
  Transmission Date: 20140711
  Serious: Yes (Other)
  Sender: FDA-Public Use
  Company Number: JP-MYLANLABS-2013S1023593

PATIENT
  Sex: Female

DRUGS (2)
  1. TEYSUNO [Suspect]
     Indication: NEOPLASM MALIGNANT
     Route: 065
  2. PACLITAXEL [Suspect]
     Indication: NEOPLASM MALIGNANT
     Route: 065

REACTIONS (2)
  - Corneal disorder [Unknown]
  - Cataract [Unknown]
